FAERS Safety Report 19478067 (Version 1)
Quarter: 2021Q2

REPORT INFORMATION
  Report Type: Spontaneous
  Country: US (occurrence: US)
  Receive Date: 20210630
  Receipt Date: 20210630
  Transmission Date: 20210717
  Serious: No
  Sender: FDA-Public Use
  Company Number: US-009507513-1709USA007343

PATIENT
  Age: 62 Year
  Sex: Male

DRUGS (9)
  1. KEYTRUDA [Suspect]
     Active Substance: PEMBROLIZUMAB
     Indication: TRANSITIONAL CELL CARCINOMA
  2. ATEZOLIZUMAB. [Suspect]
     Active Substance: ATEZOLIZUMAB
     Indication: TRANSITIONAL CELL CARCINOMA
     Dosage: UNK
  3. KEYTRUDA [Suspect]
     Active Substance: PEMBROLIZUMAB
     Indication: COLON CANCER
     Dosage: 200 MG, Q3 WEEKS
     Route: 042
     Dates: start: 201606, end: 201702
  4. IPILIMUMAB [Suspect]
     Active Substance: IPILIMUMAB
     Indication: TRANSITIONAL CELL CARCINOMA
     Dosage: UNK
  5. NIVOLUMAB [Suspect]
     Active Substance: NIVOLUMAB
     Indication: MISMATCH REPAIR CANCER SYNDROME
  6. NIVOLUMAB [Suspect]
     Active Substance: NIVOLUMAB
     Indication: TRANSITIONAL CELL CARCINOMA
  7. IPILIMUMAB [Suspect]
     Active Substance: IPILIMUMAB
     Indication: MISMATCH REPAIR CANCER SYNDROME
  8. KEYTRUDA [Suspect]
     Active Substance: PEMBROLIZUMAB
     Indication: MISMATCH REPAIR CANCER SYNDROME
     Dosage: UNK
  9. ATEZOLIZUMAB. [Suspect]
     Active Substance: ATEZOLIZUMAB
     Indication: MISMATCH REPAIR CANCER SYNDROME

REACTIONS (2)
  - Off label use [Unknown]
  - Blood bilirubin increased [Unknown]

NARRATIVE: CASE EVENT DATE: 201606
